FAERS Safety Report 25621067 (Version 1)
Quarter: 2025Q3

REPORT INFORMATION
  Report Type: Spontaneous
  Country: GB (occurrence: GB)
  Receive Date: 20250730
  Receipt Date: 20250730
  Transmission Date: 20251020
  Serious: Yes (Death, Life-Threatening, Other)
  Sender: CIPLA
  Company Number: GB-MHRA-MED-202507151517321780-HYQTG

PATIENT

DRUGS (12)
  1. FINASTERIDE [Suspect]
     Active Substance: FINASTERIDE
     Indication: Product used for unknown indication
     Dosage: 5 MILLIGRAM, QD (5MG DAILY)
     Route: 065
     Dates: start: 20250519, end: 20250626
  2. OMEPRAZOLE [Suspect]
     Active Substance: OMEPRAZOLE
     Indication: Duodenal ulcer
     Dosage: 40 MILLIGRAM, BID (40MG TWICE DAILY)
     Route: 065
     Dates: start: 20250605, end: 20250626
  3. AMDINOCILLIN PIVOXIL [Suspect]
     Active Substance: AMDINOCILLIN PIVOXIL
     Indication: Urinary tract infection
     Dosage: 400 MILLIGRAM, TID (400MG THREE TIMES A DAY - HAD TWO COURSES)
     Route: 065
     Dates: start: 20250523, end: 20250602
  4. AMDINOCILLIN PIVOXIL [Suspect]
     Active Substance: AMDINOCILLIN PIVOXIL
     Dosage: 400 MILLIGRAM, TID (400MG THREE TIMES A DAY - HAD TWO COURSES)
     Route: 065
     Dates: start: 20250625, end: 20250702
  5. FOSFOMYCIN [Concomitant]
     Active Substance: FOSFOMYCIN
     Indication: Urinary tract infection
     Route: 065
     Dates: start: 20250415, end: 20250415
  6. FLUCONAZOLE [Concomitant]
     Active Substance: FLUCONAZOLE
     Indication: Product used for unknown indication
     Route: 065
     Dates: start: 20250430, end: 20250513
  7. APIXABAN [Concomitant]
     Active Substance: APIXABAN
     Indication: Atrial fibrillation
     Route: 065
     Dates: start: 20250415, end: 20250616
  8. BISOPROLOL [Concomitant]
     Active Substance: BISOPROLOL
     Indication: Product used for unknown indication
     Route: 065
     Dates: end: 20250616
  9. SODIUM BICARBONATE [Concomitant]
     Active Substance: SODIUM BICARBONATE
     Indication: Product used for unknown indication
     Route: 065
     Dates: end: 20250711
  10. SODIUM ZIRCONIUM CYCLOSILICATE [Concomitant]
     Active Substance: SODIUM ZIRCONIUM CYCLOSILICATE
     Indication: Hyperkalaemia
     Route: 065
     Dates: start: 20250515, end: 20250516
  11. FEXOFENADINE [Concomitant]
     Active Substance: FEXOFENADINE HYDROCHLORIDE
     Indication: Product used for unknown indication
     Route: 065
     Dates: start: 20250625, end: 20250711
  12. FAMOTIDINE [Concomitant]
     Active Substance: FAMOTIDINE
     Indication: Product used for unknown indication
     Route: 065
     Dates: start: 20250626, end: 20250711

REACTIONS (5)
  - Stevens-Johnson syndrome [Fatal]
  - Toxic epidermal necrolysis [Not Recovered/Not Resolved]
  - Mouth ulceration [Not Recovered/Not Resolved]
  - Genital ulceration [Not Recovered/Not Resolved]
  - Rash papular [Unknown]

NARRATIVE: CASE EVENT DATE: 20250623
